FAERS Safety Report 16766318 (Version 1)
Quarter: 2019Q3

REPORT INFORMATION
  Report Type: Spontaneous
  Country: US (occurrence: US)
  Receive Date: 20190903
  Receipt Date: 20190903
  Transmission Date: 20191005
  Serious: Yes (Other)
  Sender: FDA-Public Use
  Company Number: US-PFIZER INC-2019375857

PATIENT
  Age: 49 Year
  Sex: Female
  Weight: 116.64 kg

DRUGS (3)
  1. GABAPENTIN. [Suspect]
     Active Substance: GABAPENTIN
     Indication: LUMBOSACRAL RADICULOPATHY
     Dosage: 3200 MG, DAILY (1 TABLET MORNING AND NOON, 2 TABLETS AT BEDTIME)
     Route: 048
  2. GABAPENTIN. [Suspect]
     Active Substance: GABAPENTIN
     Indication: CERVICAL RADICULOPATHY
     Dosage: 600 MG, THRICE DAILY
     Route: 048
  3. GABAPENTIN. [Suspect]
     Active Substance: GABAPENTIN
     Dosage: 1200 MG, THRICE DAILY
     Route: 048

REACTIONS (8)
  - Off label use [Unknown]
  - Skin laceration [Unknown]
  - Balance disorder [Unknown]
  - Anal incontinence [Unknown]
  - Neuropathy peripheral [Unknown]
  - Stress [Unknown]
  - Drug ineffective for unapproved indication [Unknown]
  - Hypoaesthesia [Unknown]
